FAERS Safety Report 5710820-9 (Version None)
Quarter: 2008Q2

REPORT INFORMATION
  Report Type: 
  Country: None (occurrence: None)
  Receive Date: 20080417
  Receipt Date: 20080417
  Transmission Date: 20081010
  Serious: Yes (Hospitalization)
  Sender: FDA-Public Use
  Company Number: None

PATIENT
  Age: 56 Year
  Sex: Male
  Weight: 65.9 kg

DRUGS (2)
  1. VIDEX [Suspect]
     Indication: HIV INFECTION
     Dates: start: 20010101, end: 20080414
  2. AVANDIA [Suspect]
     Indication: DIABETES MELLITUS

REACTIONS (2)
  - ACUTE MYOCARDIAL INFARCTION [None]
  - CARDIAC FAILURE CONGESTIVE [None]
